FAERS Safety Report 22605687 (Version 1)
Quarter: 2023Q2

REPORT INFORMATION
  Report Type: Spontaneous
  Country: IT (occurrence: IT)
  Receive Date: 20230615
  Receipt Date: 20230615
  Transmission Date: 20230722
  Serious: Yes (Hospitalization)
  Sender: FDA-Public Use
  Company Number: None

PATIENT
  Age: 9 Year
  Sex: Male
  Weight: 19 kg

DRUGS (13)
  1. DAPTOMYCIN [Suspect]
     Active Substance: DAPTOMYCIN
     Dosage: 140 MG, 1X/DAY (EXPECTED UNTIL 09JUN)
     Route: 051
  2. MEROPENEM [Suspect]
     Active Substance: MEROPENEM
     Dosage: 600 MG, 3X/DAY (EXPECTED UNTIL 06JUN)
     Route: 051
  3. CLOBAZAM [Suspect]
     Active Substance: CLOBAZAM
     Dosage: 7.5 MG (2.5 MG + 5 MG /DIE)
     Route: 048
  4. OMEPRAZOLE [Suspect]
     Active Substance: OMEPRAZOLE
     Dosage: 20 MG, 1X/DAY
     Route: 051
  5. AMIODARONE [Suspect]
     Active Substance: AMIODARONE
     Dosage: 100 MG, 1X/DAY
     Route: 048
  6. LASIX [Suspect]
     Active Substance: FUROSEMIDE
     Dosage: 5 MG, AS NEEDED
     Route: 051
  7. LASIX [Suspect]
     Active Substance: FUROSEMIDE
     Dosage: 10 MG, DAILY
     Dates: start: 20230601, end: 20230601
  8. LASIX [Suspect]
     Active Substance: FUROSEMIDE
     Dosage: 5 MG, DAILY
     Dates: start: 20230602, end: 20230606
  9. ASPIRIN DL-LYSINE [Suspect]
     Active Substance: ASPIRIN DL-LYSINE
     Dosage: 75 MG, 1X/DAY
     Route: 048
  10. CALCIFEDIOL [Suspect]
     Active Substance: CALCIFEDIOL
     Dosage: 3 DROP, 1X/DAY
     Route: 048
  11. VALPROATE SODIUM [Suspect]
     Active Substance: VALPROATE SODIUM
     Dosage: 250 MG, 2X/DAY (SACHET)
     Route: 048
  12. TOPIRAMATE [Suspect]
     Active Substance: TOPIRAMATE
     Dosage: 12.5 MG, 2X/DAY
     Route: 048
  13. ETHOSUXIMIDE [Suspect]
     Active Substance: ETHOSUXIMIDE
     Dosage: 50 MG + 300 MG (ADDITIONAL DOWN-TITRATION PLANNED)
     Route: 048

REACTIONS (1)
  - Oliguria [Not Recovered/Not Resolved]

NARRATIVE: CASE EVENT DATE: 20230528
